FAERS Safety Report 6301657-0 (Version None)
Quarter: 2009Q3

REPORT INFORMATION
  Report Type: 
  Country: None (occurrence: None)
  Receive Date: 20090805
  Receipt Date: 20090727
  Transmission Date: 20100115
  Serious: Yes (Hospitalization)
  Sender: FDA-Public Use
  Company Number: 8049180

PATIENT
  Age: 54 Year
  Sex: Female
  Weight: 35 kg

DRUGS (10)
  1. KEPPRA [Suspect]
     Dosage: 1 G 1/D PO
     Route: 048
     Dates: start: 20090301
  2. RETROVIR [Suspect]
     Indication: HIV INFECTION
     Dosage: 100 MG 3/D PO
     Route: 048
     Dates: start: 20090301
  3. BACTRIM [Suspect]
     Indication: PROPHYLAXIS
     Dosage: 1 DF 3/D PO
     Route: 048
     Dates: start: 20090301
  4. TELZIR  /01644801/ [Suspect]
     Indication: HIV INFECTION
     Dosage: 1.4 G 2/D PO
     Route: 048
     Dates: start: 20090301
  5. NORVIR [Suspect]
     Indication: HIV INFECTION
     Dosage: 100 MG 2/D PO
     Route: 048
     Dates: start: 20090301
  6. ISENTRESS [Suspect]
     Indication: HIV INFECTION
     Dosage: 2 DF /D
     Dates: start: 20090301
  7. FUZEON [Concomitant]
  8. VITAMIN B12  /00056201/ [Concomitant]
  9. IMOVANE [Concomitant]
  10. ACYCLOVIR [Concomitant]

REACTIONS (7)
  - ANAEMIA MACROCYTIC [None]
  - FEBRILE CONVULSION [None]
  - HAPTOGLOBIN INCREASED [None]
  - HERPES ZOSTER [None]
  - RED BLOOD CELL SCHISTOCYTES PRESENT [None]
  - RETICULOCYTE COUNT DECREASED [None]
  - THROMBOCYTOPENIA [None]
